FAERS Safety Report 14630270 (Version 1)
Quarter: 2018Q1

REPORT INFORMATION
  Report Type: Spontaneous
  Country: GB (occurrence: GB)
  Receive Date: 20180313
  Receipt Date: 20180313
  Transmission Date: 20180509
  Serious: No
  Sender: FDA-Public Use
  Company Number: None

PATIENT
  Age: 23 Year
  Sex: Female
  Weight: 80.5 kg

DRUGS (3)
  1. BEECHAMS ALL-IN-ONE LIQUID - 160 ML [Suspect]
     Active Substance: ACETAMINOPHEN\GUAIFENESIN\PHENYLEPHRINE HYDROCHLORIDE
     Indication: NASOPHARYNGITIS
     Dosage: ?          QUANTITY:2 TEASPOON(S);?
     Route: 048
     Dates: start: 20180311, end: 20180313
  2. BEECHAMS ALL-IN-ONE LIQUID - 160 ML [Suspect]
     Active Substance: ACETAMINOPHEN\GUAIFENESIN\PHENYLEPHRINE HYDROCHLORIDE
     Indication: INFLUENZA
     Dosage: ?          QUANTITY:2 TEASPOON(S);?
     Route: 048
     Dates: start: 20180311, end: 20180313
  3. CITILOPRAM [Concomitant]

REACTIONS (6)
  - Throat irritation [None]
  - Tremor [None]
  - Hyperhidrosis [None]
  - Dyspepsia [None]
  - Malaise [None]
  - Feeling cold [None]

NARRATIVE: CASE EVENT DATE: 20180312
